FAERS Safety Report 11793876 (Version 1)
Quarter: 2015Q4

REPORT INFORMATION
  Report Type: Spontaneous
  Country: US (occurrence: None)
  Receive Date: 20151201
  Receipt Date: 20151201
  Transmission Date: 20160305
  Serious: Yes (Other)
  Sender: FDA-Public Use
  Company Number: None

PATIENT
  Age: 33 Year
  Sex: Female

DRUGS (1)
  1. TRIPLE THERAPY (AMOXICILLIN\CLARITHROMYCIN\OMEPRAZOLE) [Suspect]
     Active Substance: AMOXICILLIN\CLARITHROMYCIN\OMEPRAZOLE
     Route: 048

REACTIONS (8)
  - Irritable bowel syndrome [None]
  - Abdominal distension [None]
  - Muscle spasms [None]
  - Gastritis [None]
  - Clostridium difficile infection [None]
  - Diarrhoea [None]
  - Vomiting [None]
  - Feeding disorder [None]

NARRATIVE: CASE EVENT DATE: 20150727
